FAERS Safety Report 6775489-3 (Version None)
Quarter: 2010Q2

REPORT INFORMATION
  Report Type: 
  Country: None (occurrence: None)
  Receive Date: 20100617
  Receipt Date: 20100609
  Transmission Date: 20101027
  Serious: Yes (Hospitalization, Other)
  Sender: FDA-Public Use
  Company Number: PHHY2010KR21654

PATIENT
  Age: 23 Year
  Sex: Female

DRUGS (7)
  1. CYCLOSPORINE [Suspect]
     Indication: RENAL TRANSPLANT
     Dosage: 25 MG, BID
  2. MYCOPHENOLATE MOFETIL [Suspect]
     Indication: IMMUNOSUPPRESSION
  3. TACROLIMUS [Suspect]
     Indication: IMMUNOSUPPRESSION
  4. AZATHIOPRINE [Suspect]
     Indication: IMMUNOSUPPRESSION
  5. BASILIXIMAB [Concomitant]
  6. VORICONAZOLE [Concomitant]
  7. STEROIDS NOS [Concomitant]

REACTIONS (10)
  - ASPERGILLOSIS [None]
  - BLOOD CREATININE INCREASED [None]
  - COUGH [None]
  - DIARRHOEA [None]
  - DYSPNOEA [None]
  - FUNGAL SKIN INFECTION [None]
  - HAEMOLYTIC ANAEMIA [None]
  - HYPERPYREXIA [None]
  - LUNG INFECTION [None]
  - NODULE [None]
